FAERS Safety Report 26107667 (Version 1)
Quarter: 2025Q4

REPORT INFORMATION
  Report Type: Spontaneous
  Country: US (occurrence: None)
  Receive Date: 20251126
  Receipt Date: 20251126
  Transmission Date: 20260117
  Serious: No
  Sender: FDA-CTU
  Company Number: None

PATIENT
  Age: 62 Year
  Sex: Male
  Weight: 76.2 kg

DRUGS (3)
  1. TACROLIMUS [Suspect]
     Active Substance: TACROLIMUS
     Dosage: 1MG BID ORAL?
     Route: 048
     Dates: start: 20250325, end: 20251003
  2. MYCOPHENOLIC ACID [Concomitant]
     Active Substance: MYCOPHENOLIC ACID
  3. BELATACEPT [Concomitant]
     Active Substance: BELATACEPT

REACTIONS (3)
  - Alopecia [None]
  - Tremor [None]
  - Therapy change [None]

NARRATIVE: CASE EVENT DATE: 20250811
